FAERS Safety Report 6579815-X (Version None)
Quarter: 2010Q1

REPORT INFORMATION
  Report Type: 
  Country: None (occurrence: None)
  Receive Date: 20100212
  Receipt Date: 20100208
  Transmission Date: 20100710
  Serious: Yes (Death)
  Sender: FDA-Public Use
  Company Number: GB-ROCHE-684489

PATIENT
  Sex: Male

DRUGS (3)
  1. AVASTIN [Suspect]
     Route: 065
     Dates: start: 20100101
  2. CAPECITABINE [Suspect]
     Route: 065
     Dates: start: 20100101
  3. OXALIPLATIN [Suspect]
     Route: 065
     Dates: start: 20100101

REACTIONS (1)
  - DEATH [None]
